FAERS Safety Report 8314498-X (Version None)
Quarter: 2012Q2

REPORT INFORMATION
  Report Type: 
  Country: None (occurrence: None)
  Receive Date: 20120426
  Receipt Date: 20120417
  Transmission Date: 20120825
  Serious: Yes (Hospitalization)
  Sender: FDA-Public Use
  Company Number: US-ACTELION-A-NJ2011-54572

PATIENT

DRUGS (3)
  1. DIURETICS [Concomitant]
  2. TRACLEER [Suspect]
     Indication: PULMONARY ARTERIAL HYPERTENSION
     Dosage: UNK
     Route: 048
     Dates: start: 20100508
  3. ADCIRCA [Concomitant]

REACTIONS (14)
  - FLUID OVERLOAD [None]
  - DIZZINESS [None]
  - DYSPNOEA [None]
  - MALAISE [None]
  - TRANSFUSION [None]
  - HEAD INJURY [None]
  - FATIGUE [None]
  - FLUID RETENTION [None]
  - WHEEZING [None]
  - SYNCOPE [None]
  - HAEMORRHAGE [None]
  - CONTUSION [None]
  - ANAEMIA [None]
  - COUGH [None]
